FAERS Safety Report 7508483-5 (Version None)
Quarter: 2011Q2

REPORT INFORMATION
  Report Type: 
  Country: None (occurrence: None)
  Receive Date: 20110527
  Receipt Date: 20110524
  Transmission Date: 20111010
  Serious: Yes (Other)
  Sender: FDA-Public Use
  Company Number: CA-PFIZER INC-2011069340

PATIENT
  Age: 81 Year
  Sex: Female
  Weight: 72 kg

DRUGS (1)
  1. NORVASC [Suspect]
     Indication: HYPERTENSION
     Dosage: 5 MG, 1X/DAY
     Route: 048
     Dates: start: 20021101

REACTIONS (3)
  - DRUG INEFFECTIVE [None]
  - BLOOD PRESSURE INCREASED [None]
  - NEOPLASM RECURRENCE [None]
